FAERS Safety Report 6611622-1 (Version None)
Quarter: 2010Q1

REPORT INFORMATION
  Report Type: 
  Country: None (occurrence: None)
  Receive Date: 20100219
  Receipt Date: 20100203
  Transmission Date: 20100710
  Serious: Yes (Death, Other)
  Sender: FDA-Public Use
  Company Number: 09-AUR-08769

PATIENT
  Sex: Male
  Weight: 1.155 kg

DRUGS (2)
  1. METFORMIN HCL [Suspect]
     Indication: GESTATIONAL DIABETES
     Dosage: 500MG,BID, TRANSPLACENT
     Route: 064
     Dates: start: 20081008, end: 20081024
  2. LABETALOL HCL [Concomitant]

REACTIONS (5)
  - DRUG EXPOSURE DURING PREGNANCY [None]
  - INTRA-UTERINE DEATH [None]
  - PLACENTAL INFARCTION [None]
  - PLACENTAL INSUFFICIENCY [None]
  - SMALL FOR DATES BABY [None]
